FAERS Safety Report 16648107 (Version 2)
Quarter: 2019Q3

REPORT INFORMATION
  Report Type: Spontaneous
  Country: US (occurrence: US)
  Receive Date: 20190730
  Receipt Date: 20190903
  Transmission Date: 20191004
  Serious: Yes (Hospitalization, Disabling, Other)
  Sender: FDA-Public Use
  Company Number: US-CATALYST PHARMACEUTICALS, INC-2019CAT00283

PATIENT
  Age: 68 Year
  Sex: Female
  Weight: 46.26 kg

DRUGS (15)
  1. OMNICEF [Suspect]
     Active Substance: CEFDINIR
     Indication: TYMPANIC MEMBRANE PERFORATION
  2. CITALOPRAM [Concomitant]
     Active Substance: CITALOPRAM HYDROBROMIDE
     Dosage: UNK, 1X/DAY
  3. PYRIDOSTIGMINE [Concomitant]
     Active Substance: PYRIDOSTIGMINE
     Dosage: 60 MG, 5X/DAY
     Route: 048
  4. TRAMADOL. [Suspect]
     Active Substance: TRAMADOL
     Indication: PAIN
     Dosage: 50 MG, UP TO 4X/DAY (EVERY 6 HOURS AS NEEDED)
     Route: 048
     Dates: end: 2019
  5. ONDANSETRON [Concomitant]
     Active Substance: ONDANSETRON
     Dosage: 4 MG, UP TO 3X/DAY (EVERY 8 HOURS AS NEEDED)
     Route: 048
  6. ACETAMINOPHEN. [Concomitant]
     Active Substance: ACETAMINOPHEN
     Dosage: 500 MG, 2X/DAY
  7. ONDANSETRON [Concomitant]
     Active Substance: ONDANSETRON
     Dosage: 8 MG, UP TO 6X/DAY
     Route: 048
  8. CYPROHEPTADINE. [Concomitant]
     Active Substance: CYPROHEPTADINE
     Dosage: 2-4 MG, AS NEEDED
     Route: 048
     Dates: end: 2019
  9. GLYCOPYRROLATE. [Concomitant]
     Active Substance: GLYCOPYRROLATE
     Dosage: 1-2 MG, UP TO 5X/DAY WITH PYRIDOSTIGMINE
  10. FIRDAPSE [Suspect]
     Active Substance: AMIFAMPRIDINE
     Indication: MYASTHENIC SYNDROME
     Dosage: 20 MG, 4X/DAY, AT 9 AM, 12PM, 3 PM, AND 6 PM
     Route: 048
     Dates: start: 201905
  11. MOBIC [Concomitant]
     Active Substance: MELOXICAM
     Dosage: 7.5 MG, 1X/DAY
     Route: 048
     Dates: end: 2019
  12. OMNICEF [Suspect]
     Active Substance: CEFDINIR
     Indication: URINARY TRACT INFECTION
     Dosage: 300 MG, 2X/DAY
     Dates: start: 20190513, end: 20190523
  13. CALCIUM 75 MG + FERROUS SULFATE 65 MG [Concomitant]
     Dosage: UNK, 1X/DAY
  14. ONDANSETRON [Concomitant]
     Active Substance: ONDANSETRON
     Dosage: 8 MG, 4X/DAY
     Route: 048
  15. ONDANSETRON [Concomitant]
     Active Substance: ONDANSETRON
     Dosage: UNK, 2X/DAY BEFORE MEALS
     Route: 048
     Dates: end: 2019

REACTIONS (29)
  - Fall [Recovering/Resolving]
  - Decreased appetite [Recovering/Resolving]
  - Cognitive disorder [Recovering/Resolving]
  - Lethargy [Unknown]
  - Confusional state [Recovering/Resolving]
  - Delirium [Recovering/Resolving]
  - Agitation [Unknown]
  - Urge incontinence [Unknown]
  - Orthostatic hypotension [Unknown]
  - Acute kidney injury [Recovered/Resolved]
  - Mobility decreased [Recovering/Resolving]
  - Amnesia [Recovered/Resolved]
  - Tympanic membrane perforation [Recovering/Resolving]
  - Diarrhoea [Unknown]
  - Dehydration [Recovered/Resolved]
  - Thrombocytopenia [Recovered/Resolved]
  - Anaemia of chronic disease [Not Recovered/Not Resolved]
  - Hallucination [Unknown]
  - Weight decreased [Unknown]
  - Asthenia [Recovering/Resolving]
  - Memory impairment [Unknown]
  - Femoral neck fracture [Recovering/Resolving]
  - Dysphagia [Unknown]
  - Disturbance in attention [Unknown]
  - Vomiting [Not Recovered/Not Resolved]
  - Productive cough [Recovered/Resolved]
  - Back pain [Recovered/Resolved]
  - Nausea [Not Recovered/Not Resolved]
  - Urinary tract infection [Recovered/Resolved]

NARRATIVE: CASE EVENT DATE: 2019
